FAERS Safety Report 16735698 (Version 7)
Quarter: 2020Q4

REPORT INFORMATION
  Report Type: Spontaneous
  Country: US (occurrence: US)
  Receive Date: 20190823
  Receipt Date: 20201020
  Transmission Date: 20210113
  Serious: No
  Sender: FDA-Public Use
  Company Number: US-PFIZER INC-2019171512

PATIENT
  Age: 69 Year
  Sex: Male
  Weight: 111 kg

DRUGS (17)
  1. LYRICA [Suspect]
     Active Substance: PREGABALIN
     Indication: PAIN
     Dosage: 300 MG, 2X/DAY
     Route: 048
     Dates: start: 201803
  2. LYRICA [Suspect]
     Active Substance: PREGABALIN
     Dosage: 150 MG, 1X/DAY (1 CAPSULE IN THE EVENING 1 TO 3 HOURS BEFORE BEDTIME ONCE A DAY)
     Route: 048
     Dates: start: 20171011
  3. PREDNISONE. [Concomitant]
     Active Substance: PREDNISONE
     Dosage: 5 MG, 1X/DAY
     Route: 048
  4. OMEPRAZOLE. [Concomitant]
     Active Substance: OMEPRAZOLE
     Dosage: 40 MG, 1X/DAY
     Route: 048
  5. FINASTERIDE. [Concomitant]
     Active Substance: FINASTERIDE
     Dosage: 5 MG, 1X/DAY
     Route: 048
     Dates: start: 20201007
  6. VITAMIN C [Concomitant]
     Active Substance: ASCORBIC ACID
     Dosage: 500 MG (SIG: AS DIRECTED ORALLY)
     Route: 048
  7. CYANOCOBALAMIN. [Concomitant]
     Active Substance: CYANOCOBALAMIN
     Indication: VITAMIN B12 DEFICIENCY
     Dosage: 1 ML, MONTHLY
     Route: 030
  8. ASPIRIN 81 [Concomitant]
     Active Substance: ASPIRIN
     Dosage: 81 MG, 1X/DAY
     Route: 048
  9. ATORVASTATIN CALCIUM. [Concomitant]
     Active Substance: ATORVASTATIN CALCIUM
     Dosage: 20 MG, 1X/DAY (1 TABLET AT BEDTIME)
     Route: 048
  10. ACTEMRA [Concomitant]
     Active Substance: TOCILIZUMAB
     Dosage: 0.9 ML (162 MG/0.9ML SOLUTION PREFILLED SYRINGE )
     Route: 058
  11. BACLOFEN. [Concomitant]
     Active Substance: BACLOFEN
     Indication: MUSCLE SPASMS
     Dosage: 10 MG, AS NEEDED (1 TABLET WITH FOOD OR MILK ORALLY EVERY 8 HOURS PRN (AS NEEDED))
     Route: 048
  12. HYDROCHLOROTHIAZIDE. [Concomitant]
     Active Substance: HYDROCHLOROTHIAZIDE
     Dosage: 25 MG, 1X/DAY (1 TABLET IN THE MORNING)
     Route: 048
  13. PREDNISONE. [Concomitant]
     Active Substance: PREDNISONE
     Dosage: 2.5 MG, 2X/DAY
     Route: 048
  14. DOXAZOSIN MESYLATE. [Concomitant]
     Active Substance: DOXAZOSIN MESYLATE
     Dosage: 4 MG, DAILY
     Route: 048
     Dates: start: 20200902
  15. LYRICA [Suspect]
     Active Substance: PREGABALIN
     Indication: POLYNEUROPATHY
     Dosage: 300 MG, 1X/DAY
     Route: 048
     Dates: start: 20171011
  16. ELDERBERRY [SAMBUCUS NIGRA] [Concomitant]
     Dosage: UNK (575 MG/5ML SYRUP, SIG: AS DIRECTED ORALLY)
     Route: 048
  17. TESTOSTERONE CYPIONATE. [Concomitant]
     Active Substance: TESTOSTERONE CYPIONATE
     Dosage: 0.5 ML, WEEKLY
     Route: 030

REACTIONS (14)
  - Blood calcium decreased [Unknown]
  - Haemoglobin decreased [Unknown]
  - Blood creatine phosphokinase decreased [Unknown]
  - Vitamin B12 increased [Unknown]
  - White blood cell count increased [Unknown]
  - Sedation complication [Unknown]
  - Blood albumin decreased [Unknown]
  - Mean cell volume decreased [Unknown]
  - Mean cell haemoglobin decreased [Unknown]
  - Incorrect dose administered [Unknown]
  - Amino acid level increased [Unknown]
  - Thinking abnormal [Unknown]
  - Red cell distribution width increased [Unknown]
  - Platelet count decreased [Unknown]

NARRATIVE: CASE EVENT DATE: 201803
